FAERS Safety Report 4816166-5 (Version None)
Quarter: 2005Q4

REPORT INFORMATION
  Report Type: 
  Country: None (occurrence: None)
  Receive Date: 20051026
  Receipt Date: 20051011
  Transmission Date: 20060501
  Serious: Yes (Disabling)
  Sender: FDA-Public Use
  Company Number: 2005-0008793

PATIENT
  Age: 46 Year
  Sex: Male

DRUGS (8)
  1. EMTRIVA [Suspect]
     Indication: HIV INFECTION
     Dosage: 200 MG 1 ONCE ORAL
     Route: 048
     Dates: start: 20050913, end: 20050913
  2. VIREAD [Suspect]
     Indication: HIV INFECTION
     Dosage: 300 MG 1 ONCE ORAL
     Route: 048
     Dates: start: 20050913, end: 20050913
  3. EFAVIRENZ (EFAVIRENZ) [Concomitant]
  4. FLUCONASOLE (FLUCONAZOLE) [Concomitant]
  5. METAMIZOLUM (METAMIZOLE) [Concomitant]
  6. DIAZEPAMUM (DIAZEPAM) [Concomitant]
  7. METACLOPRAMIDUM (METACLOPRAMIDE) [Concomitant]
  8. TAVEGILUM (CLEMASTINE) [Concomitant]

REACTIONS (3)
  - ANGIONEUROTIC OEDEMA [None]
  - PYREXIA [None]
  - RASH ERYTHEMATOUS [None]
